FAERS Safety Report 11183264 (Version 1)
Quarter: 2015Q2

REPORT INFORMATION
  Report Type: Report from Study
  Country: CO (occurrence: CO)
  Receive Date: 20150611
  Receipt Date: 20150611
  Transmission Date: 20150821
  Serious: Yes (Other)
  Sender: FDA-Public Use
  Company Number: CO-BAXTER-2015BAX031509

PATIENT
  Age: 4 Year

DRUGS (1)
  1. CEFTRIAXONA 1G [Suspect]
     Active Substance: CEFTRIAXONE
     Indication: PRODUCT USED FOR UNKNOWN INDICATION
     Route: 042

REACTIONS (2)
  - Cholelithiasis [Unknown]
  - Cholangitis [Recovered/Resolved]
